FAERS Safety Report 5324657-6 (Version None)
Quarter: 2007Q2

REPORT INFORMATION
  Report Type: 
  Country: None (occurrence: None)
  Receive Date: 20070509
  Receipt Date: 20070423
  Transmission Date: 20071010
  Serious: Yes (Death)
  Sender: FDA-Public Use
  Company Number: DSA_29850_2007

PATIENT
  Sex: Female

DRUGS (2)
  1. DILTIAZEM HCL [Suspect]
     Indication: HYPERTENSION
     Dosage: 300 MG QD ORAL
     Route: 048
     Dates: start: 20020101
  2. CAPOTEN [Concomitant]

REACTIONS (3)
  - CARDIOPULMONARY FAILURE [None]
  - CHEST PAIN [None]
  - DYSPNOEA [None]
